FAERS Safety Report 4990319-8 (Version None)
Quarter: 2006Q2

REPORT INFORMATION
  Report Type: 
  Country: None (occurrence: None)
  Receive Date: 20060427
  Receipt Date: 20060411
  Transmission Date: 20061013
  Serious: Yes (Hospitalization)
  Sender: FDA-Public Use
  Company Number: 430004M03FRA

PATIENT
  Age: 39 Year
  Sex: Female

DRUGS (5)
  1. NOVANTRONE [Suspect]
     Indication: MULTIPLE SCLEROSIS
     Dosage: 19.44 MG, 1 IN 1 DAYS, INTRAVENOUS
     Route: 042
     Dates: start: 20000801, end: 20000801
  2. NOVANTRONE [Suspect]
     Indication: MULTIPLE SCLEROSIS
     Dosage: 19.44 MG, 1 IN 1 DAYS, INTRAVENOUS
     Route: 042
     Dates: start: 20000905, end: 20000905
  3. NOVANTRONE [Suspect]
     Indication: MULTIPLE SCLEROSIS
     Dosage: 19.44 MG, 1 IN 1 DAYS, INTRAVENOUS
     Route: 042
     Dates: start: 20001030, end: 20001030
  4. GLATIRAMER ACETATE [Suspect]
     Indication: MULTIPLE SCLEROSIS
     Dates: start: 20000615
  5. METHYLPREDNISOLONE SODIUM SUCCINATE [Suspect]
     Indication: MULTIPLE SCLEROSIS
     Dates: start: 20000801, end: 20001030

REACTIONS (5)
  - ACUTE PROMYELOCYTIC LEUKAEMIA [None]
  - ASTHENIA [None]
  - DISSEMINATED INTRAVASCULAR COAGULATION [None]
  - GENE MUTATION IDENTIFICATION TEST POSITIVE [None]
  - VOMITING [None]
